FAERS Safety Report 13824909 (Version 1)
Quarter: 2017Q3

REPORT INFORMATION
  Report Type: Spontaneous
  Country: US (occurrence: US)
  Receive Date: 20170802
  Receipt Date: 20170802
  Transmission Date: 20171127
  Serious: Yes (Other)
  Sender: FDA-Public Use
  Company Number: None

PATIENT
  Age: 67 Year
  Sex: Female
  Weight: 90 kg

DRUGS (2)
  1. RECLAST [Suspect]
     Active Substance: ZOLEDRONIC ACID
  2. RECLAST [Suspect]
     Active Substance: ZOLEDRONIC ACID

REACTIONS (29)
  - Gastrooesophageal reflux disease [None]
  - Hypovitaminosis [None]
  - Neck pain [None]
  - Diarrhoea [None]
  - Gait disturbance [None]
  - Drug ineffective [None]
  - Urinary tract disorder [None]
  - Abdominal discomfort [None]
  - Back pain [None]
  - Musculoskeletal chest pain [None]
  - Pain [None]
  - Musculoskeletal disorder [None]
  - Skin exfoliation [None]
  - Decreased appetite [None]
  - Eye disorder [None]
  - Abdominal pain upper [None]
  - Headache [None]
  - Bone disorder [None]
  - Pain in extremity [None]
  - Chest pain [None]
  - Haematochezia [None]
  - Asthenia [None]
  - Fatigue [None]
  - Weight decreased [None]
  - Blood urine present [None]
  - Hypoaesthesia [None]
  - Bone pain [None]
  - Quality of life decreased [None]
  - Protein total decreased [None]

NARRATIVE: CASE EVENT DATE: 20170101
